FAERS Safety Report 11132554 (Version 1)
Quarter: 2015Q2

REPORT INFORMATION
  Report Type: Spontaneous
  Country: US (occurrence: US)
  Receive Date: 20150522
  Receipt Date: 20150522
  Transmission Date: 20150821
  Serious: Yes (Hospitalization)
  Sender: FDA-Public Use
  Company Number: US-009507513-1505USA006664

PATIENT
  Age: 45 Year
  Sex: Female

DRUGS (3)
  1. ZIPRASIDONE [Concomitant]
     Active Substance: ZIPRASIDONE
  2. REMERON [Suspect]
     Active Substance: MIRTAZAPINE
     Indication: MAJOR DEPRESSION
     Dosage: UNK
  3. VENLAFAXINE HYDROCHLORIDE. [Concomitant]
     Active Substance: VENLAFAXINE HYDROCHLORIDE

REACTIONS (3)
  - Depression [Recovering/Resolving]
  - Anxiety [Unknown]
  - Drug ineffective [Unknown]
